FAERS Safety Report 4693337-2 (Version None)
Quarter: 2005Q2

REPORT INFORMATION
  Report Type: 
  Country: None (occurrence: None)
  Receive Date: 20050617
  Receipt Date: 20050315
  Transmission Date: 20051028
  Serious: Yes (Hospitalization, Other)
  Sender: FDA-Public Use
  Company Number: US-MERCK-0503USA02470

PATIENT
  Age: 55 Year
  Sex: Male

DRUGS (2)
  1. VIOXX [Concomitant]
     Indication: BACK PAIN
     Route: 048
     Dates: end: 20020130
  2. VIOXX [Suspect]
     Route: 065

REACTIONS (25)
  - ARTHRALGIA [None]
  - ASTHMA [None]
  - BLOOD CREATINE PHOSPHOKINASE INCREASED [None]
  - BURNING SENSATION [None]
  - CEREBROVASCULAR ACCIDENT [None]
  - CONVULSION [None]
  - DIVERTICULUM [None]
  - DIZZINESS [None]
  - DRUG INEFFECTIVE [None]
  - FAECAL OCCULT BLOOD POSITIVE [None]
  - GROIN PAIN [None]
  - HAEMATOCHEZIA [None]
  - HAEMORRHAGE INTRACRANIAL [None]
  - HAEMORRHOIDS [None]
  - HEADACHE [None]
  - HEPATIC ENZYME INCREASED [None]
  - HIGH DENSITY LIPOPROTEIN DECREASED [None]
  - HYPERTENSION [None]
  - HYPOAESTHESIA [None]
  - INJURY [None]
  - MUSCULOSKELETAL STIFFNESS [None]
  - PAIN [None]
  - PARAESTHESIA [None]
  - SCIATICA [None]
  - SYNCOPE [None]
